FAERS Safety Report 9656528 (Version 1)
Quarter: 2013Q4

REPORT INFORMATION
  Report Type: Spontaneous
  Country: DK (occurrence: FR)
  Receive Date: 20131030
  Receipt Date: 20131030
  Transmission Date: 20140711
  Serious: Yes (Hospitalization)
  Sender: FDA-Public Use
  Company Number: FR-FRI-1000050554

PATIENT
  Age: 50 Year
  Sex: Male
  Weight: 79 kg

DRUGS (5)
  1. ESCITALOPRAM [Suspect]
     Dosage: OVERDOSE WITH 10 TABLETS
     Route: 048
     Dates: start: 20130923, end: 20130923
  2. PARACETAMOL [Suspect]
     Dosage: OVERDOSE WITH 50 GRAMS
     Route: 048
     Dates: start: 20130923, end: 20130923
  3. ZOLPIDEM [Suspect]
     Dosage: OVERDOSE WITH 14 TABLETS
     Route: 048
     Dates: start: 20130923, end: 20130923
  4. TERCIAN [Suspect]
     Dosage: OVERDOSE WITH 45 TABLETS
     Route: 048
     Dates: start: 20130923, end: 20130923
  5. VENLAFAXINE [Suspect]
     Dosage: OVERDOSE WITH 10 TABLETS
     Route: 048
     Dates: start: 20130923, end: 20130923

REACTIONS (4)
  - Coma [Recovered/Resolved]
  - Lactic acidosis [Recovered/Resolved]
  - Hepatocellular injury [Recovering/Resolving]
  - Hyperphosphataemia [Recovered/Resolved]
